FAERS Safety Report 4845325-0 (Version None)
Quarter: 2005Q4

REPORT INFORMATION
  Report Type: 
  Country: None (occurrence: None)
  Receive Date: 20051205
  Receipt Date: 20051122
  Transmission Date: 20060501
  Serious: Yes (Hospitalization)
  Sender: FDA-Public Use
  Company Number: FR-GLAXOSMITHKLINE-B0401891A

PATIENT
  Age: 47 Year
  Sex: Male

DRUGS (5)
  1. RETROVIR [Suspect]
     Indication: ACQUIRED IMMUNODEFICIENCY SYNDROME
     Dosage: 600MG PER DAY
     Route: 048
     Dates: end: 20050909
  2. VIREAD [Concomitant]
     Indication: ACQUIRED IMMUNODEFICIENCY SYNDROME
     Route: 065
  3. KALETRA [Concomitant]
     Indication: ACQUIRED IMMUNODEFICIENCY SYNDROME
     Route: 065
  4. RIMIFON [Concomitant]
     Indication: TUBERCULOSIS
     Route: 065
     Dates: start: 20041220
  5. ANSATIPINE [Concomitant]
     Indication: TUBERCULOSIS
     Route: 065
     Dates: start: 20041220

REACTIONS (7)
  - BLOOD FOLATE DECREASED [None]
  - DYSPNOEA EXACERBATED [None]
  - GENERAL PHYSICAL HEALTH DETERIORATION [None]
  - HAEMOGLOBIN DECREASED [None]
  - PANCYTOPENIA [None]
  - PLATELET COUNT DECREASED [None]
  - WHITE BLOOD CELL COUNT DECREASED [None]
